FAERS Safety Report 4296302-2 (Version None)
Quarter: 2004Q1

REPORT INFORMATION
  Report Type: 
  Country: None (occurrence: None)
  Receive Date: 20040217
  Receipt Date: 20031003
  Transmission Date: 20041129
  Serious: No
  Sender: FDA-Public Use
  Company Number: US-GLAXOSMITHKLINE-A0430034A

PATIENT

DRUGS (1)
  1. LAMICTAL [Suspect]

REACTIONS (4)
  - ANTINUCLEAR ANTIBODY POSITIVE [None]
  - FATIGUE [None]
  - LYMPHADENOPATHY [None]
  - PAIN [None]
